FAERS Safety Report 4541863-9 (Version None)
Quarter: 2004Q4

REPORT INFORMATION
  Report Type: 
  Country: None (occurrence: None)
  Receive Date: 20041230
  Receipt Date: 20041117
  Transmission Date: 20050328
  Serious: Yes (Hospitalization)
  Sender: FDA-Public Use
  Company Number: PHBS2004JP15637

PATIENT
  Age: 93 Year
  Sex: Female
  Weight: 40 kg

DRUGS (11)
  1. DIOVAN [Suspect]
     Indication: HYPERTENSION
     Dosage: 240 MG/DAY
     Route: 048
     Dates: start: 20040805, end: 20040921
  2. SERENACE [Suspect]
     Dosage: 3 MG/DAY
     Route: 048
     Dates: start: 20040912, end: 20040921
  3. SERENACE [Suspect]
     Dosage: 1 DF, UNK
  4. POLYCARBOPHIL CALCIUM [Concomitant]
     Dosage: 3.6 G, UNK
     Route: 048
     Dates: start: 20040101, end: 20040921
  5. CALSLOT [Concomitant]
     Dosage: 20 MG, UNK
     Route: 048
     Dates: start: 20040604, end: 20040921
  6. EPINEPHRINE [Concomitant]
     Dosage: 60 MG, UNK
     Route: 048
     Dates: start: 20040702, end: 20040921
  7. MENBIT [Concomitant]
     Dosage: 0.4 MG, UNK
     Route: 048
     Dates: start: 20040829, end: 20040921
  8. VASOLATOR [Concomitant]
     Dosage: 27 MG, TID
     Dates: start: 20040101, end: 20040921
  9. EVAMYL [Concomitant]
     Dosage: 3 DF, UNK
     Route: 048
     Dates: start: 20040820
  10. TOFISOPAM [Concomitant]
     Dates: start: 20040912
  11. SERENACE [Suspect]
     Dosage: 2 / 3 AMP
     Dates: start: 20040901

REACTIONS (15)
  - AKINESIA [None]
  - BLOOD CREATINE PHOSPHOKINASE INCREASED [None]
  - DROOLING [None]
  - DYSPHAGIA [None]
  - ERYTHEMA [None]
  - EXCORIATION [None]
  - INCOHERENT [None]
  - INSOMNIA [None]
  - MUSCULOSKELETAL STIFFNESS [None]
  - MYOGLOBIN BLOOD INCREASED [None]
  - PARKINSONISM [None]
  - RESTLESSNESS [None]
  - RHABDOMYOLYSIS [None]
  - SCHIZOPHRENIA [None]
  - TREMOR [None]
